FAERS Safety Report 9919236 (Version 1)
Quarter: 2014Q1

REPORT INFORMATION
  Report Type: Spontaneous
  Country: US (occurrence: US)
  Receive Date: 20140224
  Receipt Date: 20140224
  Transmission Date: 20141002
  Serious: Yes (Death)
  Sender: FDA-Public Use
  Company Number: US-JNJFOC-20140213387

PATIENT
  Sex: Female
  Weight: 60.78 kg

DRUGS (26)
  1. SIMPONI ARIA [Suspect]
     Indication: PRODUCT USED FOR UNKNOWN INDICATION
     Route: 042
     Dates: start: 20130806
  2. SIMPONI ARIA [Suspect]
     Indication: PRODUCT USED FOR UNKNOWN INDICATION
     Route: 042
     Dates: start: 20130903
  3. SIMPONI ARIA [Suspect]
     Indication: PRODUCT USED FOR UNKNOWN INDICATION
     Route: 042
     Dates: start: 20131029
  4. ZYRTEC [Concomitant]
     Route: 065
     Dates: start: 20130122
  5. DEPAKOTE [Concomitant]
     Route: 065
     Dates: start: 20130122
  6. LEVOTHYROXINE [Concomitant]
     Route: 065
     Dates: start: 20130122
  7. LIPITOR [Concomitant]
     Route: 065
     Dates: start: 20130122
  8. ASA [Concomitant]
     Route: 065
     Dates: start: 20130122
  9. LORCET PLUS [Concomitant]
     Route: 065
     Dates: start: 20130122
  10. BENTYL [Concomitant]
     Route: 065
     Dates: start: 20130122
  11. CITRACAL [Concomitant]
     Route: 065
     Dates: start: 20130122
  12. FOLIC ACID [Concomitant]
     Route: 065
     Dates: start: 20130122
  13. XANAX [Concomitant]
     Route: 065
     Dates: start: 20130122
  14. METHOTREXATE [Concomitant]
     Route: 065
     Dates: start: 20130122
  15. FROVA [Concomitant]
     Route: 065
     Dates: start: 20130122
  16. PHENERGAN [Concomitant]
     Route: 065
  17. BONIVA [Concomitant]
     Route: 065
     Dates: start: 20130122
  18. MIGRANAL [Concomitant]
     Route: 065
     Dates: start: 20130122
  19. VITAMIN D [Concomitant]
     Route: 065
     Dates: start: 20130122
  20. LUNESTA [Concomitant]
     Route: 065
     Dates: start: 20130122
  21. TOPAMAX [Concomitant]
     Route: 065
     Dates: start: 20130122
  22. AMERGE [Concomitant]
     Route: 065
     Dates: start: 20130122
  23. VITAMIN B [Concomitant]
     Route: 065
     Dates: start: 20130122
  24. LIDODERM [Concomitant]
     Route: 065
     Dates: start: 20130611
  25. VITAMIN B12 [Concomitant]
     Route: 065
     Dates: start: 20130319
  26. VOLTAREN [Concomitant]
     Route: 065
     Dates: start: 20130709

REACTIONS (1)
  - Death [Fatal]
